FAERS Safety Report 17870852 (Version 2)
Quarter: 2020Q3

REPORT INFORMATION
  Report Type: Report from Study
  Country: US (occurrence: US)
  Receive Date: 20200608
  Receipt Date: 20200706
  Transmission Date: 20201103
  Serious: Yes (Other)
  Sender: FDA-Public Use
  Company Number: US-BAYER-2020-106120

PATIENT
  Age: 70 Year
  Sex: Female

DRUGS (1)
  1. STIVARGA [Suspect]
     Active Substance: REGORAFENIB
     Dosage: 160 MG, QD
     Route: 048
     Dates: start: 20200525

REACTIONS (8)
  - Pyrexia [Unknown]
  - Urinary tract infection [Unknown]
  - Mucosal inflammation [Unknown]
  - Amnesia [Unknown]
  - Neuropathy peripheral [Unknown]
  - Balance disorder [Unknown]
  - Diarrhoea [Recovered/Resolved]
  - Hypertension [Unknown]

NARRATIVE: CASE EVENT DATE: 20200601
